FAERS Safety Report 19487566 (Version 1)
Quarter: 2021Q3

REPORT INFORMATION
  Report Type: Other
  Country: CN (occurrence: CN)
  Receive Date: 20210702
  Receipt Date: 20210702
  Transmission Date: 20211014
  Serious: Yes (Other)
  Sender: FDA-Public Use
  Company Number: CN-ROCHE-2860701

PATIENT

DRUGS (7)
  1. CAPECITABINE. [Suspect]
     Active Substance: CAPECITABINE
     Indication: RECTAL CANCER
     Dosage: DAY 1 TO 5 PER WEEK
     Route: 048
  2. CAPECITABINE. [Suspect]
     Active Substance: CAPECITABINE
     Dosage: TWICE DAILY FOR 14 DAYS EVERY 3 WEEKS
     Route: 048
  3. LEUCOVORIN. [Suspect]
     Active Substance: LEUCOVORIN
     Indication: RECTAL CANCER
     Route: 065
  4. OXALIPLATIN. [Suspect]
     Active Substance: OXALIPLATIN
     Indication: RECTAL CANCER
     Dosage: AT DAY 1, 8, 15, 22, 29 BY CONTINUOUS INFUSION THROUGHOUT RADIATION
     Route: 065
  5. OXALIPLATIN. [Suspect]
     Active Substance: OXALIPLATIN
     Dosage: IN A 4?HOUR INFUSION ON DAY 1 OF EACH CYCLE
     Route: 065
  6. OXALIPLATIN. [Suspect]
     Active Substance: OXALIPLATIN
     Dosage: IN A 4 HOUR INFUSION
     Route: 065
  7. FLUOROURACIL. [Suspect]
     Active Substance: FLUOROURACIL
     Indication: RECTAL CANCER
     Dosage: 400 MG/M2 ON DAY 1, AND A 48?HOUR INFUSION OF FLUOROURACIL 2400 MG/M2
     Route: 040

REACTIONS (11)
  - Anaemia [Unknown]
  - Pyrexia [Unknown]
  - Radiation proctitis [Unknown]
  - Radiation skin injury [Unknown]
  - Myelosuppression [Unknown]
  - Leukopenia [Unknown]
  - Palmar-plantar erythrodysaesthesia syndrome [Unknown]
  - Diarrhoea [Unknown]
  - Vomiting [Unknown]
  - Infection [Unknown]
  - Nausea [Unknown]
